FAERS Safety Report 9364176 (Version 2)
Quarter: 2013Q4

REPORT INFORMATION
  Report Type: Spontaneous
  Country: JP (occurrence: JP)
  Receive Date: 20130624
  Receipt Date: 20131022
  Transmission Date: 20140711
  Serious: Yes (Other)
  Sender: FDA-Public Use
  Company Number: JP-PFIZER INC-2013184064

PATIENT
  Age: 73 Year
  Sex: Female
  Weight: 50 kg

DRUGS (5)
  1. LYRICA [Suspect]
     Indication: PAIN
     Dosage: 25 MG, 3X/DAY
     Route: 048
     Dates: start: 20130522, end: 20130523
  2. RHEUMATREX [Concomitant]
     Dosage: 2 MG, 2X/DAY
     Route: 048
  3. FOLIAMIN [Concomitant]
     Dosage: 3 MG, 1X/DAY
     Route: 048
  4. EDIROL [Concomitant]
     Dosage: 0.75 UG, 1X/DAY
     Route: 048
  5. MEVALOTIN [Concomitant]
     Dosage: 10 MG, 1X/DAY
     Route: 048

REACTIONS (8)
  - Palpitations [Recovered/Resolved]
  - Dyspnoea [Recovered/Resolved]
  - Abdominal pain [Recovered/Resolved]
  - Hypertension [Recovered/Resolved]
  - Dizziness [Recovered/Resolved]
  - Ventricular extrasystoles [Unknown]
  - Cardiomegaly [Unknown]
  - Tachycardia [Unknown]
